FAERS Safety Report 17762437 (Version 1)
Quarter: 2020Q2

REPORT INFORMATION
  Report Type: Spontaneous
  Country: US (occurrence: US)
  Receive Date: 20200508
  Receipt Date: 20200508
  Transmission Date: 20200714
  Serious: No
  Sender: FDA-Public Use
  Company Number: US-TEVA-2020-US-1232540

PATIENT
  Sex: Male

DRUGS (2)
  1. CARBIDOPA AND LEVODOPA [Suspect]
     Active Substance: CARBIDOPA\LEVODOPA
     Dosage: 3 TABLETS A DAY
     Route: 065
     Dates: start: 2015
  2. CARBIDOPA AND LEVODOPA [Suspect]
     Active Substance: CARBIDOPA\LEVODOPA
     Indication: PARKINSON^S DISEASE
     Dosage: GRADUALLY INCREASED TO 5 TABLETS A DAY
     Route: 065

REACTIONS (3)
  - Product colour issue [Unknown]
  - On and off phenomenon [Not Recovered/Not Resolved]
  - Drug ineffective [Unknown]
